FAERS Safety Report 11063780 (Version 1)
Quarter: 2015Q2

REPORT INFORMATION
  Report Type: Spontaneous
  Country: US (occurrence: US)
  Receive Date: 20150424
  Receipt Date: 20150424
  Transmission Date: 20150821
  Serious: No
  Sender: FDA-Public Use
  Company Number: US-TARO-2014TAR00095

PATIENT
  Sex: Male

DRUGS (5)
  1. FLUOROURACIL TOPICAL CREAM USP 5% [Suspect]
     Active Substance: FLUOROURACIL
     Indication: MALIGNANT MELANOMA
     Dosage: UNK UNK, 2X/DAY
     Route: 061
     Dates: start: 20140520, end: 20140618
  2. UNSPECIFIED VITAMINS [Concomitant]
  3. FLUOROURACIL TOPICAL CREAM USP 5% [Suspect]
     Active Substance: FLUOROURACIL
     Indication: SKIN DISORDER
  4. UNSPECIFIED CHOLESTEROL MEDICATION [Concomitant]
  5. UNSPECIFIED HIGH BLOOD PRESSURE MEDICATION [Concomitant]
     Active Substance: UNSPECIFIED INGREDIENT

REACTIONS (8)
  - Application site scar [Recovered/Resolved]
  - Skin exfoliation [Recovered/Resolved]
  - Insomnia [Recovered/Resolved]
  - Application site pruritus [Recovered/Resolved]
  - Application site scab [Recovered/Resolved]
  - Application site haemorrhage [Recovered/Resolved]
  - Dry skin [Recovered/Resolved]
  - Drug dose omission [Recovered/Resolved]

NARRATIVE: CASE EVENT DATE: 2014
